FAERS Safety Report 7721180-6 (Version None)
Quarter: 2011Q3

REPORT INFORMATION
  Report Type: 
  Country: None (occurrence: None)
  Receive Date: 20110831
  Receipt Date: 20110823
  Transmission Date: 20111222
  Serious: Yes (Hospitalization, Other)
  Sender: FDA-Public Use
  Company Number: US-BAYER-201037787NA

PATIENT
  Age: 30 Year
  Sex: Female

DRUGS (8)
  1. YASMIN [Suspect]
     Dosage: UNK
     Dates: start: 20061201, end: 20070301
  2. YASMIN [Suspect]
     Dosage: UNK
     Dates: start: 20090701, end: 20091201
  3. METFORMIN [Concomitant]
  4. YASMIN [Suspect]
     Dosage: UNK
     Dates: start: 20100201
  5. YASMIN [Suspect]
     Dosage: UNK
     Dates: start: 20070801, end: 20080601
  6. YASMIN [Suspect]
     Dosage: UNK
     Route: 048
     Dates: start: 20031001, end: 20060601
  7. ASCORBIC ACID [Concomitant]
  8. ADVAIR DISKUS 100/50 [Concomitant]

REACTIONS (7)
  - NAUSEA [None]
  - DYSPEPSIA [None]
  - CHOLELITHIASIS [None]
  - ABDOMINAL PAIN [None]
  - GALLBLADDER DISORDER [None]
  - PROCEDURAL PAIN [None]
  - CHOLECYSTITIS CHRONIC [None]
